FAERS Safety Report 4972502-0 (Version None)
Quarter: 2006Q1

REPORT INFORMATION
  Report Type: 
  Country: None (occurrence: None)
  Receive Date: 20060216
  Receipt Date: 20051227
  Transmission Date: 20060701
  Serious: No
  Sender: FDA-Public Use
  Company Number: TPA2005A01724

PATIENT
  Age: 50 Year
  Sex: Female
  Weight: 52.1637 kg

DRUGS (2)
  1. ROZEREM [Suspect]
     Indication: INSOMNIA
     Dosage: 8 MG, QHS, PER ORAL
     Route: 048
     Dates: start: 20051224, end: 20051225
  2. FOSAMAX [Concomitant]

REACTIONS (2)
  - PALPITATIONS [None]
  - TREMOR [None]
